FAERS Safety Report 4523363-5 (Version None)
Quarter: 2004Q4

REPORT INFORMATION
  Report Type: 
  Country: None (occurrence: None)
  Receive Date: 20041210
  Receipt Date: 20041207
  Transmission Date: 20050328
  Serious: Yes (Disabling)
  Sender: FDA-Public Use
  Company Number: US-MERCK-0412USA00893

PATIENT
  Age: 55 Year
  Sex: Male

DRUGS (4)
  1. ZOCOR [Suspect]
     Indication: BLOOD CHOLESTEROL INCREASED
     Route: 048
     Dates: start: 20031201
  2. TRAZODONE HYDROCHLORIDE [Concomitant]
     Route: 065
  3. IRBESARTAN [Concomitant]
     Route: 065
  4. SULINDAC [Concomitant]
     Route: 065

REACTIONS (2)
  - MYOPATHY [None]
  - VISION BLURRED [None]
